FAERS Safety Report 19973792 (Version 3)
Quarter: 2022Q1

REPORT INFORMATION
  Report Type: Spontaneous
  Country: ES (occurrence: ES)
  Receive Date: 20211020
  Receipt Date: 20220126
  Transmission Date: 20220423
  Serious: Yes (Other)
  Sender: FDA-Public Use
  Company Number: ES-MYLANLABS-2021M1073592

PATIENT
  Age: 55 Year
  Sex: Male

DRUGS (2)
  1. TRAMADOL [Suspect]
     Active Substance: TRAMADOL
     Indication: Spinal pain
     Dosage: UNK UNK, QD (ALMOST 1 BOTTLE DAILY)
  2. TRAMADOL [Suspect]
     Active Substance: TRAMADOL
     Dosage: UNK UNK, QD (REDUCED DOSE)

REACTIONS (4)
  - Drug dependence [Unknown]
  - Mouth injury [Unknown]
  - Speech disorder [Unknown]
  - Overdose [Unknown]
